FAERS Safety Report 5233852-6 (Version None)
Quarter: 2007Q1

REPORT INFORMATION
  Report Type: 
  Country: None (occurrence: None)
  Receive Date: 20061208
  Receipt Date: 20060316
  Transmission Date: 20070707
  Serious: Yes (Other)
  Sender: FDA-Public Use
  Company Number: 2006UW04516

PATIENT
  Age: 70 Year
  Sex: Female

DRUGS (4)
  1. CRESTOR [Suspect]
     Indication: BLOOD CHOLESTEROL INCREASED
  2. LOPID [Concomitant]
  3. VERAPAMIL [Concomitant]
  4. COUMADIN [Concomitant]

REACTIONS (1)
  - ILL-DEFINED DISORDER [None]
